FAERS Safety Report 19192328 (Version 4)
Quarter: 2021Q2

REPORT INFORMATION
  Report Type: Report from Study
  Country: US (occurrence: US)
  Receive Date: 20210428
  Receipt Date: 20210601
  Transmission Date: 20210717
  Serious: Yes (Hospitalization)
  Sender: FDA-Public Use
  Company Number: US-SEATTLE GENETICS-2021SGN02453

PATIENT
  Sex: Female

DRUGS (3)
  1. TUCATINIB [Suspect]
     Active Substance: TUCATINIB
     Indication: BREAST CANCER FEMALE
     Dosage: UNK
  2. TUCATINIB [Suspect]
     Active Substance: TUCATINIB
     Dosage: 150 MG, BID
     Route: 048
  3. XELODA [Suspect]
     Active Substance: CAPECITABINE
     Dosage: 500 MG, QD
     Route: 048

REACTIONS (6)
  - Illness [Unknown]
  - Adverse event [Unknown]
  - Gait inability [Unknown]
  - Vomiting [Unknown]
  - Gastrointestinal disorder [Unknown]
  - Diarrhoea [Unknown]
